FAERS Safety Report 22034009 (Version 1)
Quarter: 2023Q1

REPORT INFORMATION
  Report Type: Spontaneous
  Country: US (occurrence: None)
  Receive Date: 20230222
  Receipt Date: 20230222
  Transmission Date: 20230418
  Serious: Yes (Life-Threatening, Hospitalization, Disabling, Other)
  Sender: FDA-Public Use
  Company Number: None

PATIENT
  Age: 69 Year
  Sex: Female
  Weight: 72 kg

DRUGS (6)
  1. RECLAST [Suspect]
     Active Substance: ZOLEDRONIC ACID
     Indication: Osteoporosis
     Dosage: OTHER FREQUENCY : ONCE A YEAR;?
     Route: 042
     Dates: start: 20220419
  2. CARVEDILOL [Concomitant]
     Active Substance: CARVEDILOL
  3. LOSARTAN [Concomitant]
     Active Substance: LOSARTAN
  4. SIMVASTATIN [Concomitant]
     Active Substance: SIMVASTATIN
  5. CALCIUM [Concomitant]
     Active Substance: CALCIUM
  6. VITAMIN D [Concomitant]
     Active Substance: VITAMIN D NOS

REACTIONS (6)
  - Influenza like illness [None]
  - Brain stem thrombosis [None]
  - Cerebrovascular accident [None]
  - Atrial fibrillation [None]
  - Toothache [None]
  - Tooth resorption [None]

NARRATIVE: CASE EVENT DATE: 20221209
